FAERS Safety Report 5980326-0 (Version None)
Quarter: 2008Q4

REPORT INFORMATION
  Report Type: 
  Country: None (occurrence: None)
  Receive Date: 20081205
  Receipt Date: 20081128
  Transmission Date: 20090506
  Serious: Yes (Other)
  Sender: FDA-Public Use
  Company Number: PHHY2008BR29939

PATIENT
  Age: 63 Year
  Sex: Male
  Weight: 91 kg

DRUGS (4)
  1. TOFRANIL [Suspect]
     Indication: DEPRESSION
     Dosage: 25 MG, QD
     Route: 048
  2. TOFRANIL [Suspect]
     Dosage: 0.5 DF, QD
     Route: 048
  3. TOFRANIL [Suspect]
     Dosage: 0.25 DF, QD
     Route: 048
  4. TRYPTANOL [Suspect]
     Indication: DEPRESSION
     Dosage: 75 MG, QD
     Route: 048

REACTIONS (4)
  - DEPRESSION [None]
  - DRUG ADMINISTRATION ERROR [None]
  - HEADACHE [None]
  - INSOMNIA [None]
